FAERS Safety Report 8565633-X (Version None)
Quarter: 2012Q3

REPORT INFORMATION
  Report Type: 
  Country: None (occurrence: None)
  Receive Date: 20120803
  Receipt Date: 20120727
  Transmission Date: 20120928
  Serious: Yes (Life-Threatening, Hospitalization)
  Sender: FDA-Public Use
  Company Number: JP-BRISTOL-MYERS SQUIBB COMPANY-16721961

PATIENT
  Age: 51 Year
  Sex: Female
  Weight: 73 kg

DRUGS (17)
  1. PREDNISOLONE [Concomitant]
     Indication: RHEUMATOID ARTHRITIS
     Dosage: TAB
     Route: 048
  2. CLONAZEPAM [Concomitant]
     Dosage: TAB
  3. BACTRIM [Concomitant]
     Indication: PROPHYLAXIS
  4. INDOMETHACIN [Concomitant]
     Indication: RHEUMATOID ARTHRITIS
     Dosage: FORMULATION-INTEBAN SP
  5. DICLOFENAC SODIUM [Concomitant]
     Indication: RHEUMATOID ARTHRITIS
  6. MERISLON [Concomitant]
     Dosage: TAB
  7. TRAMADOL HYDROCHLORIDE/ACETAMINOPHEN [Concomitant]
     Indication: RHEUMATOID ARTHRITIS
     Dosage: TAB
  8. ORENCIA [Suspect]
     Indication: RHEUMATOID ARTHRITIS
     Dosage: 18MAR11,01APR11,15APR,13MAY,10JUN11
     Route: 041
     Dates: start: 20110318, end: 20110610
  9. DIFLUNISAL [Concomitant]
     Dosage: TAB
  10. DORAL [Concomitant]
     Dosage: TAB
  11. ROZEREM [Concomitant]
     Dosage: TAB
  12. CYANOCOBALAMIN [Concomitant]
     Indication: OSTEOPOROSIS PROPHYLAXIS
     Dosage: TAB
  13. PL GRANULES [Concomitant]
     Indication: PROPHYLAXIS
  14. FORTEO [Concomitant]
     Indication: OSTEOPOROSIS PROPHYLAXIS
     Dosage: INJ
     Route: 058
  15. TACROLIMUS [Concomitant]
     Indication: RHEUMATOID ARTHRITIS
  16. LANSOPRAZOLE [Concomitant]
     Indication: GASTRITIS PROPHYLAXIS
     Dosage: TAB
  17. LYRICA [Concomitant]
     Indication: RHEUMATOID ARTHRITIS
     Dosage: CAP

REACTIONS (3)
  - URINARY TRACT INFECTION [None]
  - SEPSIS [None]
  - CHOLECYSTITIS [None]
